FAERS Safety Report 19127992 (Version 1)
Quarter: 2021Q2

REPORT INFORMATION
  Report Type: Spontaneous
  Country: US (occurrence: US)
  Receive Date: 20210413
  Receipt Date: 20210413
  Transmission Date: 20210717
  Serious: Yes (Hospitalization)
  Sender: FDA-Public Use
  Company Number: None

PATIENT
  Age: 59 Year
  Sex: Female

DRUGS (1)
  1. XELJANZ [Suspect]
     Active Substance: TOFACITINIB CITRATE
     Indication: ASTHMA
     Route: 048
     Dates: start: 20180124

REACTIONS (3)
  - Condition aggravated [None]
  - Neoplasm malignant [None]
  - Therapy interrupted [None]

NARRATIVE: CASE EVENT DATE: 20210412
